FAERS Safety Report 12480693 (Version 2)
Quarter: 2016Q2

REPORT INFORMATION
  Report Type: Spontaneous
  Country: IT (occurrence: IT)
  Receive Date: 20160620
  Receipt Date: 20160622
  Transmission Date: 20160815
  Serious: Yes (Hospitalization)
  Sender: FDA-Public Use
  Company Number: IT-PFIZER INC-2016296564

PATIENT
  Age: 21 Year
  Sex: Female
  Weight: 64 kg

DRUGS (7)
  1. CARBOPLATINO HOSPIRA [Suspect]
     Active Substance: CARBOPLATIN
     Indication: CERVIX CARCINOMA
     Dosage: 546 MG, CYCLIC
     Route: 042
     Dates: start: 20160601, end: 20160601
  2. SOLDESAM [Concomitant]
     Active Substance: DEXAMETHASONE
     Dosage: 16 MG, UNK
     Route: 030
     Dates: start: 20160531, end: 20160531
  3. SOLDESAM [Concomitant]
     Active Substance: DEXAMETHASONE
     Indication: ANAPHYLAXIS PROPHYLAXIS
     Dosage: 8 MG, UNK
     Route: 042
     Dates: start: 20160601, end: 20160601
  4. TRIMETON [Concomitant]
     Active Substance: CHLORPHENIRAMINE MALEATE
     Indication: ANAPHYLAXIS PROPHYLAXIS
     Dosage: 10 MG, UNK
     Route: 042
     Dates: start: 20160601, end: 20160601
  5. RANITIDINE. [Concomitant]
     Active Substance: RANITIDINE
     Indication: PROPHYLAXIS AGAINST GASTROINTESTINAL ULCER
     Dosage: 50 MG, UNK
     Route: 042
     Dates: start: 20160601, end: 20160601
  6. ZOFRAN [Concomitant]
     Active Substance: ONDANSETRON HYDROCHLORIDE
     Indication: PROPHYLAXIS OF NAUSEA AND VOMITING
     Dosage: 1 DF, UNK
     Route: 042
     Dates: start: 20160601, end: 20160601
  7. ZYRTEC [Concomitant]
     Active Substance: CETIRIZINE HYDROCHLORIDE
     Indication: ANAPHYLAXIS PROPHYLAXIS
     Dosage: 1 DF, UNK
     Dates: start: 20160531, end: 20160601

REACTIONS (5)
  - Dyspnoea [Recovered/Resolved]
  - Product use issue [Unknown]
  - Abdominal pain upper [Recovered/Resolved]
  - Blood pressure increased [Recovered/Resolved]
  - Infusion related reaction [Recovered/Resolved]

NARRATIVE: CASE EVENT DATE: 20160601
